FAERS Safety Report 5623804-6 (Version None)
Quarter: 2008Q1

REPORT INFORMATION
  Report Type: 
  Country: None (occurrence: None)
  Receive Date: 20080207
  Receipt Date: 20080123
  Transmission Date: 20080703
  Serious: Yes (Hospitalization)
  Sender: FDA-Public Use
  Company Number: 2008BI002694

PATIENT
  Age: 56 Year
  Sex: Male
  Weight: 75 kg

DRUGS (5)
  1. AVONEX [Suspect]
     Dosage: 30 UG;QW; IM
     Route: 030
     Dates: start: 20060904
  2. ENALAPRIL MALEATE [Concomitant]
  3. AMLODIPINE [Concomitant]
  4. GLIBENCLAMIDE [Concomitant]
  5. METFORMIN HCL [Concomitant]

REACTIONS (2)
  - CEREBRAL ATROPHY [None]
  - HEMIPLEGIA [None]
